FAERS Safety Report 9735663 (Version 1)
Quarter: 2013Q4

REPORT INFORMATION
  Report Type: Spontaneous
  Country: US (occurrence: None)
  Receive Date: 20131205
  Receipt Date: 20131205
  Transmission Date: 20140711
  Serious: No
  Sender: FDA-Public Use
  Company Number: None

PATIENT
  Age: 20 Year
  Sex: Female

DRUGS (1)
  1. HUMERA [Suspect]
     Indication: ANKYLOSING SPONDYLITIS
     Dosage: 40MG, EOW, SUBQ
     Dates: start: 20130912

REACTIONS (1)
  - Injection site urticaria [None]
